FAERS Safety Report 7936976-5 (Version None)
Quarter: 2011Q4

REPORT INFORMATION
  Report Type: 
  Country: None (occurrence: None)
  Receive Date: 20111123
  Receipt Date: 20111109
  Transmission Date: 20120403
  Serious: Yes (Hospitalization)
  Sender: FDA-Public Use
  Company Number: JP-ROCHE-787952

PATIENT
  Sex: Female

DRUGS (8)
  1. RITUXAN [Concomitant]
     Route: 051
     Dates: start: 20110519
  2. GANCICLOVIR [Suspect]
     Route: 041
     Dates: start: 20110616, end: 20110620
  3. GANCICLOVIR [Suspect]
     Route: 041
     Dates: start: 20110621, end: 20110624
  4. GANCICLOVIR [Suspect]
     Indication: CYTOMEGALOVIRUS INFECTION
     Dosage: 250-500 MG/DAY, FORM: INFUSION
     Route: 041
     Dates: start: 20110611, end: 20110615
  5. ACYCLOVIR [Suspect]
     Indication: HERPES VIRUS INFECTION
     Dosage: DOSE: 1000-3000 MG/DAY
     Route: 048
     Dates: start: 20110611, end: 20110620
  6. LEVOFLOXACIN [Concomitant]
     Route: 048
     Dates: start: 20110616, end: 20110704
  7. DECADRON [Concomitant]
  8. CYTARABINE [Concomitant]
     Route: 051
     Dates: start: 20110519

REACTIONS (1)
  - BLOOD CREATINE PHOSPHOKINASE INCREASED [None]
